FAERS Safety Report 7637541-X (Version None)
Quarter: 2011Q3

REPORT INFORMATION
  Report Type: 
  Country: None (occurrence: None)
  Receive Date: 20110726
  Receipt Date: 20110719
  Transmission Date: 20111222
  Serious: Yes (Other)
  Sender: FDA-Public Use
  Company Number: SK-ABBOTT-11P-260-0837355-00

PATIENT

DRUGS (6)
  1. CARBAMAZEPINE [Suspect]
     Indication: EPILEPSY
     Route: 065
  2. TOPIRAMATE [Suspect]
     Indication: EPILEPSY
     Route: 065
  3. LAMOTRIGINE [Suspect]
     Indication: EPILEPSY
     Route: 065
  4. PHENYTOIN [Suspect]
     Indication: EPILEPSY
     Route: 065
  5. VALPROATE SODIUM [Suspect]
     Indication: EPILEPSY
     Route: 065
  6. VIGABATRIN [Suspect]
     Indication: EPILEPSY
     Route: 065

REACTIONS (23)
  - RASH [None]
  - NAUSEA [None]
  - WEIGHT INCREASED [None]
  - HYPERTRICHOSIS [None]
  - ANAPHYLACTIC REACTION [None]
  - HEADACHE [None]
  - COGNITIVE DISORDER [None]
  - PANCREATITIS [None]
  - DIPLOPIA [None]
  - ALOPECIA [None]
  - THROMBOCYTOPENIA [None]
  - DYSPEPSIA [None]
  - DECREASED APPETITE [None]
  - NEUTROPENIA [None]
  - VOMITING [None]
  - TREMOR [None]
  - ANAEMIA [None]
  - WEIGHT CONTROL [None]
  - TUNNEL VISION [None]
  - DISTURBANCE IN ATTENTION [None]
  - LEUKOPENIA [None]
  - FATIGUE [None]
  - GINGIVAL HYPERPLASIA [None]
